FAERS Safety Report 10983413 (Version 1)
Quarter: 2015Q2

REPORT INFORMATION
  Report Type: Spontaneous
  Country: AT (occurrence: AT)
  Receive Date: 20150403
  Receipt Date: 20150403
  Transmission Date: 20150821
  Serious: Yes (Other)
  Sender: FDA-Public Use
  Company Number: AT-PFIZER INC-2015110233

PATIENT
  Age: 54 Year
  Sex: Male

DRUGS (1)
  1. CAVERJECT [Suspect]
     Active Substance: ALPROSTADIL
     Dosage: 10 ?G, UNK
     Dates: start: 2013

REACTIONS (2)
  - Epididymitis [Unknown]
  - Prostatitis [Unknown]
